FAERS Safety Report 6646613-8 (Version None)
Quarter: 2010Q1

REPORT INFORMATION
  Report Type: 
  Country: None (occurrence: None)
  Receive Date: 20100317
  Receipt Date: 20100308
  Transmission Date: 20100710
  Serious: Yes (Other)
  Sender: FDA-Public Use
  Company Number: 528902

PATIENT
  Age: 54 Year
  Sex: Male

DRUGS (2)
  1. CARBOPLATIN [Suspect]
     Indication: LUNG ADENOCARCINOMA
     Dosage: 798 MG
  2. DOCETAXEL [Suspect]
     Indication: LUNG ADENOCARCINOMA
     Dosage: 130 MG

REACTIONS (1)
  - ACTINIC KERATOSIS [None]
